FAERS Safety Report 15899107 (Version 1)
Quarter: 2019Q1

REPORT INFORMATION
  Report Type: Spontaneous
  Country: DE (occurrence: DE)
  Receive Date: 20190201
  Receipt Date: 20190201
  Transmission Date: 20190417
  Serious: Yes (Other)
  Sender: FDA-Public Use
  Company Number: DE-SUN PHARMACEUTICAL INDUSTRIES LTD-2019RR-197990

PATIENT
  Sex: Female
  Weight: 57 kg

DRUGS (1)
  1. CIPRO [Suspect]
     Active Substance: CIPROFLOXACIN HYDROCHLORIDE
     Indication: URINARY TRACT INFECTION
     Dosage: 1-0-1
     Route: 048
     Dates: start: 20190106, end: 20190110

REACTIONS (1)
  - Transient global amnesia [Unknown]

NARRATIVE: CASE EVENT DATE: 20190115
